FAERS Safety Report 17202167 (Version 8)
Quarter: 2021Q2

REPORT INFORMATION
  Report Type: Report from Study
  Country: NL (occurrence: NL)
  Receive Date: 20191226
  Receipt Date: 20210405
  Transmission Date: 20210716
  Serious: Yes (Hospitalization)
  Sender: FDA-Public Use
  Company Number: NL-PFIZER INC-2019547368

PATIENT
  Age: 71 Year
  Sex: Female
  Weight: 55 kg

DRUGS (23)
  1. DUODOPA [Suspect]
     Active Substance: CARBIDOPA\LEVODOPA
     Dosage: CD: 3.0ML/H
     Route: 050
     Dates: start: 20210126
  2. SINEMET [Concomitant]
     Active Substance: CARBIDOPA\LEVODOPA
     Dosage: 125 MG 2 TIMES
     Route: 048
  3. NAPROXEN. [Concomitant]
     Active Substance: NAPROXEN
     Dosage: UNK
  4. MORFINE [Concomitant]
     Active Substance: MORPHINE
     Dosage: 10 MG, 1X/DAY (2 TABLETS)
     Route: 048
  5. VITAMIN B12 [VITAMIN B12 NOS] [Concomitant]
     Active Substance: CYANOCOBALAMIN
     Indication: ANAEMIA
     Dosage: UNK
  6. DUODOPA [Suspect]
     Active Substance: CARBIDOPA\LEVODOPA
     Indication: PARKINSON^S DISEASE
     Dosage: CONTINUOUS DOSE HAS ALREADY BEEN DECREASED FROM 2.9 TO 2.4
     Route: 050
  7. MORFINE [Concomitant]
     Active Substance: MORPHINE
     Dosage: 20 MG, 1X/DAY (2 TABLETS)
     Route: 048
  8. DUODOPA [Suspect]
     Active Substance: CARBIDOPA\LEVODOPA
     Dosage: MD: 3.5 ML, CD FROM: 2.5 ML/HR TO 2.5 ML/HR, ED: 1.0 ML
     Route: 050
  9. DUODOPA [Suspect]
     Active Substance: CARBIDOPA\LEVODOPA
     Dosage: UNK
  10. PSYLLIUM FIBRE [Concomitant]
     Active Substance: HERBALS\PLANTAGO OVATA SEED COAT
     Indication: ABNORMAL FAECES
     Dosage: UNK
  11. DUODOPA [Suspect]
     Active Substance: CARBIDOPA\LEVODOPA
     Dosage: MD: 3.5 ML, CD: 2.8 ML/H, ED: 2.0 ML, REMAINS AT 16
     Route: 050
  12. DUODOPA [Suspect]
     Active Substance: CARBIDOPA\LEVODOPA
     Dosage: MD 3.5, CD 2.8, ED 2.0REMAINS AT 16 HOURS
     Route: 050
  13. DUODOPA [Suspect]
     Active Substance: CARBIDOPA\LEVODOPA
     Dosage: MD: 6.5, CD: 2.5, ED: 1.0 16 HOUR ADMINISTRATIONCONTINUOUS DOSE WAS INCREASED
     Route: 050
     Dates: start: 20190304
  14. DUODOPA [Suspect]
     Active Substance: CARBIDOPA\LEVODOPA
     Dosage: UNK
     Route: 050
  15. DUODOPA [Suspect]
     Active Substance: CARBIDOPA\LEVODOPA
     Dosage: MD: 3.5 ML, CD: 3 ML/H, ED: 2 ML
     Dates: start: 20190304
  16. AZILECT [Suspect]
     Active Substance: RASAGILINE MESYLATE
     Dosage: UNK
  17. OXYCODON [Concomitant]
     Active Substance: OXYCODONE
     Dosage: UNK
  18. SINEMET [Concomitant]
     Active Substance: CARBIDOPA\LEVODOPA
     Indication: PARKINSON^S DISEASE
     Dosage: 250 MG
     Route: 048
  19. METAMUCIL [Concomitant]
     Active Substance: PLANTAGO SEED
     Indication: ABNORMAL FAECES
     Dosage: 1 DF, 1X/DAY
  20. DUODOPA [Suspect]
     Active Substance: CARBIDOPA\LEVODOPA
     Dosage: DECREASED THE PUMP TO 2.7 (WAS 2.9)
     Route: 050
  21. VITAMIN B6 [Concomitant]
     Active Substance: PYRIDOXINE HYDROCHLORIDE
     Indication: ANAEMIA
     Dosage: UNK
  22. PREGABALIN. [Suspect]
     Active Substance: PREGABALIN
     Dosage: 1 DF, 1X/DAY
     Route: 048
  23. DUODOPA [Suspect]
     Active Substance: CARBIDOPA\LEVODOPA
     Dosage: MD: 3.5 CD: 2.8 ED: 1.5, REMAINS AT 16 HOURS
     Route: 050

REACTIONS (46)
  - Memory impairment [Not Recovered/Not Resolved]
  - Oropharyngeal pain [Not Recovered/Not Resolved]
  - Musculoskeletal stiffness [Not Recovered/Not Resolved]
  - Hypoaesthesia [Not Recovered/Not Resolved]
  - Overdose [Recovered/Resolved]
  - Mobility decreased [Not Recovered/Not Resolved]
  - Abnormal dreams [Not Recovered/Not Resolved]
  - On and off phenomenon [Not Recovered/Not Resolved]
  - Underdose [Not Recovered/Not Resolved]
  - Fibroma [Recovering/Resolving]
  - Bradykinesia [Not Recovered/Not Resolved]
  - Impaired self-care [Not Recovered/Not Resolved]
  - Delirium [Recovered/Resolved]
  - Cognitive disorder [Not Recovered/Not Resolved]
  - Intentional product misuse [Recovered/Resolved]
  - Fall [Not Recovered/Not Resolved]
  - Nocturia [Not Recovered/Not Resolved]
  - Dystonia [Not Recovered/Not Resolved]
  - Hyperkinesia [Recovering/Resolving]
  - Pain in extremity [Not Recovered/Not Resolved]
  - Tremor [Not Recovered/Not Resolved]
  - Restless legs syndrome [Not Recovered/Not Resolved]
  - Stoma site extravasation [Recovered/Resolved]
  - Muscle rigidity [Not Recovered/Not Resolved]
  - Rapid eye movement sleep behaviour disorder [Not Recovered/Not Resolved]
  - Dyskinesia [Not Recovered/Not Resolved]
  - Pain [Not Recovered/Not Resolved]
  - Device dislocation [Unknown]
  - Gait disturbance [Recovered/Resolved]
  - Haematochezia [Not Recovered/Not Resolved]
  - Intentional product misuse [Unknown]
  - Hallucination [Not Recovered/Not Resolved]
  - Faeces soft [Not Recovered/Not Resolved]
  - Back pain [Recovered/Resolved]
  - Nerve compression [Not Recovered/Not Resolved]
  - Movement disorder [Not Recovered/Not Resolved]
  - Hypophagia [Recovered/Resolved]
  - Disorientation [Not Recovered/Not Resolved]
  - Frequent bowel movements [Recovering/Resolving]
  - Skin disorder [Not Recovered/Not Resolved]
  - Stress [Not Recovered/Not Resolved]
  - Vasodilatation [Not Recovered/Not Resolved]
  - Anaemia [Recovered/Resolved]
  - Movement disorder [Recovered/Resolved]
  - Incontinence [Not Recovered/Not Resolved]
  - Decreased appetite [Not Recovered/Not Resolved]

NARRATIVE: CASE EVENT DATE: 2019
